FAERS Safety Report 25397082 (Version 1)
Quarter: 2025Q2

REPORT INFORMATION
  Report Type: Spontaneous
  Country: US (occurrence: US)
  Receive Date: 20250604
  Receipt Date: 20250604
  Transmission Date: 20250717
  Serious: No
  Sender: REGENERON
  Company Number: US-REGENERON PHARMACEUTICALS, INC.-2024-081069

PATIENT
  Sex: Male

DRUGS (3)
  1. EYLEA HD [Suspect]
     Active Substance: AFLIBERCEPT
     Indication: Neovascular age-related macular degeneration
  2. EYLEA HD [Suspect]
     Active Substance: AFLIBERCEPT
     Dosage: 8 MG, ONCE EVERY 8 WEEKS, FORMULATION: HD VIAL
  3. PROLIA [Concomitant]
     Active Substance: DENOSUMAB
     Indication: Bone density abnormal

REACTIONS (2)
  - Vision blurred [Unknown]
  - Therapeutic response decreased [Unknown]

NARRATIVE: CASE EVENT DATE: 20240101
